FAERS Safety Report 17494893 (Version 1)
Quarter: 2020Q1

REPORT INFORMATION
  Report Type: Spontaneous
  Country: US (occurrence: US)
  Receive Date: 20200303
  Receipt Date: 20200303
  Transmission Date: 20200409
  Serious: No
  Sender: FDA-Public Use
  Company Number: US-AMNEAL PHARMACEUTICALS-2019-AMRX-03219

PATIENT
  Age: 71 Year
  Sex: Male

DRUGS (5)
  1. INSULIN [Concomitant]
     Active Substance: INSULIN NOS
     Indication: DIABETES MELLITUS
     Dosage: UNK
     Route: 065
  2. RYTARY [Suspect]
     Active Substance: CARBIDOPA\LEVODOPA
     Indication: PARKINSON^S DISEASE
     Dosage: 2 CAPSULES, TID
     Route: 048
     Dates: start: 201911, end: 2019
  3. RYTARY [Suspect]
     Active Substance: CARBIDOPA\LEVODOPA
     Dosage: 1 CAPSULES, TID (8AM-12NN-5PM OR 6PM)
     Route: 048
     Dates: start: 2019, end: 2019
  4. RYTARY [Suspect]
     Active Substance: CARBIDOPA\LEVODOPA
     Dosage: TAKING HALF THE DOSE FOR A BIT OF TIME
     Route: 048
     Dates: start: 2019
  5. RYTARY [Suspect]
     Active Substance: CARBIDOPA\LEVODOPA
     Dosage: 3 TIMES A DAY BUT ON THE AFTERNOON TAKE 2 CAPSULE AT 5PM OR 6PM
     Route: 048
     Dates: start: 2019, end: 2019

REACTIONS (7)
  - Constipation [Recovering/Resolving]
  - Abdominal discomfort [Recovering/Resolving]
  - Gait disturbance [Recovering/Resolving]
  - Inappropriate schedule of product administration [Unknown]
  - Confusional state [Recovering/Resolving]
  - Nausea [Recovering/Resolving]
  - Therapeutic product effect variable [Unknown]

NARRATIVE: CASE EVENT DATE: 2019
